FAERS Safety Report 8782721 (Version 2)
Quarter: 2012Q4

REPORT INFORMATION
  Report Type: Report from Study
  Country: IT (occurrence: IT)
  Receive Date: 20120913
  Receipt Date: 20121127
  Transmission Date: 20130627
  Serious: Yes (Death, Hospitalization)
  Sender: FDA-Public Use
  Company Number: IT-ROCHE-1120556

PATIENT
  Age: 31 Year
  Sex: Male

DRUGS (1)
  1. VEMURAFENIB [Suspect]
     Indication: MALIGNANT MELANOMA
     Route: 048
     Dates: start: 20120626, end: 20120903

REACTIONS (3)
  - Dyspnoea [Fatal]
  - Abdominal pain [Fatal]
  - Thrombocytopenia [Fatal]
